FAERS Safety Report 5492106-3 (Version None)
Quarter: 2007Q4

REPORT INFORMATION
  Report Type: 
  Country: None (occurrence: None)
  Receive Date: 20071022
  Receipt Date: 20071010
  Transmission Date: 20080405
  Serious: Yes (Hospitalization)
  Sender: FDA-Public Use
  Company Number: FR-BRISTOL-MYERS SQUIBB COMPANY-13948096

PATIENT
  Age: 71 Year
  Sex: Male
  Weight: 53 kg

DRUGS (2)
  1. ZERIT [Suspect]
  2. VIDEX [Suspect]

REACTIONS (2)
  - NEUROPATHY [None]
  - VITAMIN D DEFICIENCY [None]
